FAERS Safety Report 19723894 (Version 3)
Quarter: 2021Q4

REPORT INFORMATION
  Report Type: Report from Study
  Country: US (occurrence: None)
  Receive Date: 20210819
  Receipt Date: 20211208
  Transmission Date: 20220303
  Serious: Yes (Hospitalization)
  Sender: FDA-Public Use
  Company Number: US-ROCHE-2892566

PATIENT
  Age: 78 Year
  Sex: Female
  Weight: 95.7 kg

DRUGS (10)
  1. CABOZANTINIB [Suspect]
     Active Substance: CABOZANTINIB
     Indication: Renal cell carcinoma
     Dosage: ON 01/OCT/2019 SHE RECEIVED THE MOST RECENT DOSE OF CABOZANTINIB PRIOR TO THE EVENT ONSET.
     Route: 048
     Dates: start: 20190819
  2. CABOZANTINIB [Suspect]
     Active Substance: CABOZANTINIB
     Dosage: ON 10/MAR/2021, THE PATIENT RECEIVED THE MOST RECENT DOSE OF CABOZANTINIB PRIOR TO THE EVENT ONSET
     Route: 048
     Dates: end: 20210312
  3. ATEZOLIZUMAB [Suspect]
     Active Substance: ATEZOLIZUMAB
     Indication: Renal cell carcinoma
     Dosage: ON 14/JUL/2021 SHE RECEIVED THE MOST RECENT DOSE OF ATEZOLIZUMAB PRIOR TO THE EVENT ONSET.
     Route: 041
     Dates: start: 20190819, end: 20210803
  4. TELMISARTAN [Concomitant]
     Active Substance: TELMISARTAN
  5. KEPPRA [Concomitant]
     Active Substance: LEVETIRACETAM
  6. ROSUVASTATIN [Concomitant]
     Active Substance: ROSUVASTATIN
  7. SERTRALINE [Concomitant]
     Active Substance: SERTRALINE HYDROCHLORIDE
  8. ESOMEPRAZOLE [Concomitant]
     Active Substance: ESOMEPRAZOLE
  9. ASPIRIN [Concomitant]
     Active Substance: ASPIRIN
  10. LEVOTHYROXINE [Concomitant]
     Active Substance: LEVOTHYROXINE

REACTIONS (1)
  - Giant cell arteritis [Not Recovered/Not Resolved]

NARRATIVE: CASE EVENT DATE: 20210709
